FAERS Safety Report 5545286-5 (Version None)
Quarter: 2007Q4

REPORT INFORMATION
  Report Type: 
  Country: None (occurrence: None)
  Receive Date: 20071211
  Receipt Date: 20071204
  Transmission Date: 20080405
  Serious: Yes (Other)
  Sender: FDA-Public Use
  Company Number: PHBS2007BR20541

PATIENT
  Age: 71 Year
  Sex: Male
  Weight: 60 kg

DRUGS (11)
  1. DIOVAN AMLO [Suspect]
     Indication: HYPERTENSION
     Dosage: VALS 160 / AMLO 5 MG/DAY
     Route: 048
  2. MONOCORDIL [Concomitant]
     Indication: HYPERTENSION
     Dosage: 20 MG/DAY
     Route: 048
  3. MONOCORDIL [Concomitant]
     Dosage: 40 MG/DAY
     Route: 048
  4. PURAN T4 [Concomitant]
     Indication: HYPERTHYROIDISM
     Dosage: 88 MG/DAY
     Route: 048
  5. ATENOLOL [Concomitant]
     Indication: HYPERTENSION
     Dosage: 100 MG/DAY
     Route: 048
  6. ASPIRIN [Concomitant]
     Dosage: 2 TABLETS/DAY
     Route: 048
  7. LASIX [Concomitant]
     Indication: HYPERTENSION
     Dosage: 1 TABLET/DAY
     Route: 048
  8. ALLOPURINOL [Concomitant]
     Indication: BLOOD URIC ACID
     Dosage: 300 MG/DAY
     Route: 048
  9. ZOCOR [Concomitant]
     Indication: BLOOD CHOLESTEROL INCREASED
     Dosage: 40 MG, QD
     Route: 048
  10. UNOPROST [Concomitant]
     Dosage: 2 MG, QD
     Route: 048
  11. DIPYRONE [Concomitant]
     Indication: PAIN
     Route: 048

REACTIONS (2)
  - HYPOTHYROIDISM [None]
  - INGUINAL HERNIA REPAIR [None]
